FAERS Safety Report 10845517 (Version 1)
Quarter: 2015Q1

REPORT INFORMATION
  Report Type: Spontaneous
  Country: US (occurrence: US)
  Receive Date: 20150220
  Receipt Date: 20150220
  Transmission Date: 20150721
  Serious: No
  Sender: FDA-Public Use
  Company Number: US-ABBVIE-14P-163-1320360-00

PATIENT

DRUGS (4)
  1. HUMIRA [Suspect]
     Active Substance: ADALIMUMAB
     Route: 065
  2. HUMIRA [Suspect]
     Active Substance: ADALIMUMAB
     Route: 065
  3. HUMIRA [Suspect]
     Active Substance: ADALIMUMAB
     Route: 065
  4. HUMIRA [Suspect]
     Active Substance: ADALIMUMAB
     Indication: PRODUCT USED FOR UNKNOWN INDICATION
     Dosage: 4 INJECTIONS,2 INTO THE ABDOMEN AND 2 INTO THE UPPER THIGHS
     Route: 065

REACTIONS (4)
  - Injection site irritation [Unknown]
  - Drug ineffective [Unknown]
  - Injection site pain [Unknown]
  - Injection site discomfort [Unknown]
